FAERS Safety Report 8198732-5 (Version None)
Quarter: 2012Q1

REPORT INFORMATION
  Report Type: 
  Country: None (occurrence: None)
  Receive Date: 20120309
  Receipt Date: 20120201
  Transmission Date: 20120608
  Serious: No
  Sender: FDA-Public Use
  Company Number: US-AMGEN-USASP2012006971

PATIENT
  Age: 83 Year
  Sex: Female

DRUGS (7)
  1. FOLIC ACID [Concomitant]
     Dosage: UNK
  2. METHOTREXATE [Concomitant]
  3. CALCIUM [Concomitant]
  4. TRIAMTERENE AND HYDROCHLOROTHIAZIDE [Concomitant]
  5. PROLIA [Suspect]
     Indication: RHEUMATOID ARTHRITIS
     Dosage: UNK UNK, Q6MO
     Dates: start: 20120126
  6. NIFEDIPINE [Concomitant]
     Dosage: UNK
  7. VITAMIN TAB [Concomitant]

REACTIONS (3)
  - URTICARIA [None]
  - NIGHT SWEATS [None]
  - FEELING ABNORMAL [None]
